FAERS Safety Report 4725194-X (Version None)
Quarter: 2005Q3

REPORT INFORMATION
  Report Type: 
  Country: None (occurrence: None)
  Receive Date: 20050725
  Receipt Date: 20050714
  Transmission Date: 20060218
  Serious: Yes (Other)
  Sender: FDA-Public Use
  Company Number: 2005-02490

PATIENT
  Age: 54 Year
  Sex: Female
  Weight: 90.7 kg

DRUGS (8)
  1. ESTRADIOL [Suspect]
     Indication: HORMONE REPLACEMENT THERAPY
     Dosage: SEE IMAGE
     Route: 048
     Dates: start: 19901201, end: 20030101
  2. ESTRADIOL [Suspect]
     Indication: HYSTERECTOMY
     Dosage: SEE IMAGE
     Route: 048
     Dates: start: 19901201, end: 20030101
  3. ESTRADIOL [Suspect]
     Indication: POSTOPERATIVE CARE
     Dosage: SEE IMAGE
     Route: 048
     Dates: start: 19901201, end: 20030101
  4. ESTRADIOL [Suspect]
     Indication: HORMONE REPLACEMENT THERAPY
     Dosage: SEE IMAGE
     Route: 048
     Dates: start: 20030101, end: 20041201
  5. ESTRADIOL [Suspect]
     Indication: HYSTERECTOMY
     Dosage: SEE IMAGE
     Route: 048
     Dates: start: 20030101, end: 20041201
  6. ESTRADIOL [Suspect]
     Indication: POSTOPERATIVE CARE
     Dosage: SEE IMAGE
     Route: 048
     Dates: start: 20030101, end: 20041201
  7. HYDROCHLOROTHIAZIDE [Concomitant]
  8. ZESTORETIC [Concomitant]

REACTIONS (1)
  - EXTRANODAL MARGINAL ZONE B-CELL LYMPHOMA (MALT TYPE) [None]
